FAERS Safety Report 10652548 (Version 1)
Quarter: 2014Q4

REPORT INFORMATION
  Report Type: Spontaneous
  Country: US (occurrence: US)
  Receive Date: 20141215
  Receipt Date: 20141215
  Transmission Date: 20150529
  Serious: No
  Sender: FDA-Public Use
  Company Number: US-BAYER-2014-182991

PATIENT
  Sex: Female

DRUGS (1)
  1. EOVIST [Suspect]
     Active Substance: GADOXETATE DISODIUM
     Indication: LIVER SCAN
     Dosage: 9 ML, ONCE
     Dates: start: 20141208, end: 20141208

REACTIONS (2)
  - Drug prescribing error [None]
  - Maternal exposure during pregnancy [None]

NARRATIVE: CASE EVENT DATE: 20141208
